FAERS Safety Report 12783775 (Version 4)
Quarter: 2016Q4

REPORT INFORMATION
  Report Type: Spontaneous
  Country: US (occurrence: US)
  Receive Date: 20160927
  Receipt Date: 20161215
  Transmission Date: 20170207
  Serious: Yes (Other)
  Sender: FDA-Public Use
  Company Number: US-BRISTOL-MYERS SQUIBB COMPANY-BMS-2016-079809

PATIENT
  Sex: Female

DRUGS (2)
  1. SPRYCEL [Suspect]
     Active Substance: DASATINIB
     Indication: CHRONIC MYELOID LEUKAEMIA
     Dosage: 100 MG, QD
     Route: 048
     Dates: start: 20160826
  2. SPRYCEL [Suspect]
     Active Substance: DASATINIB
     Indication: PRODUCT USED FOR UNKNOWN INDICATION
     Dosage: 50 MG, QD
     Route: 048
     Dates: start: 20160801

REACTIONS (11)
  - Fatigue [Not Recovered/Not Resolved]
  - Ageusia [Unknown]
  - Chest pain [Not Recovered/Not Resolved]
  - Appetite disorder [Unknown]
  - Weight abnormal [Unknown]
  - White blood cell count decreased [Unknown]
  - Dyspnoea [Unknown]
  - Platelet count decreased [Unknown]
  - Eye swelling [Not Recovered/Not Resolved]
  - Malignant neoplasm progression [Unknown]
  - Haemoglobin decreased [Unknown]
